FAERS Safety Report 6329462-X (Version None)
Quarter: 2009Q3

REPORT INFORMATION
  Report Type: 
  Country: None (occurrence: None)
  Receive Date: 20090826
  Receipt Date: 20090814
  Transmission Date: 20100115
  Serious: Yes (Life-Threatening)
  Sender: FDA-Public Use
  Company Number: JP-ABBOTT-09P-087-0591378-00

PATIENT
  Sex: Male

DRUGS (7)
  1. NORVIR [Suspect]
     Indication: HIV INFECTION
     Dosage: 200 MG DAILY DOSE
     Route: 048
     Dates: end: 20090216
  2. FOSAMPRENAVIR [Suspect]
     Indication: HIV INFECTION
     Dates: start: 20080401, end: 20090216
  3. EMTRICITABINE W/TENOFOVIR [Suspect]
     Indication: HIV INFECTION
     Dosage: 1 TABLET DAILY DOSE
     Route: 048
     Dates: start: 20080401, end: 20090216
  4. ZIDOVUDINE [Concomitant]
     Indication: HIV INFECTION
     Dosage: 400 MG DAILY DOSE
     Route: 048
     Dates: start: 20090217
  5. EFAVIRENZ [Concomitant]
     Indication: HIV INFECTION
     Dosage: 600 MG DAILY DOSE
     Dates: start: 20090217
  6. RALTEGRAVIR [Concomitant]
     Indication: HIV INFECTION
     Dosage: 800 MG DAILY DOSE
     Route: 048
     Dates: start: 20090217
  7. SULFAMETHOXAZOLE AND TRIMETHOPRIM [Concomitant]
     Indication: ANTIFUNGAL PROPHYLAXIS
     Dosage: 1 TABLET DAILY DOSE
     Route: 048
     Dates: start: 20080711

REACTIONS (1)
  - LYMPHOMA [None]
